FAERS Safety Report 5125291-3 (Version None)
Quarter: 2006Q4

REPORT INFORMATION
  Report Type: 
  Country: None (occurrence: None)
  Receive Date: 20061010
  Receipt Date: 20060925
  Transmission Date: 20070319
  Serious: Yes (Hospitalization)
  Sender: FDA-Public Use
  Company Number: E2090-00095-CLI-JP

PATIENT
  Age: 79 Year
  Sex: Male

DRUGS (12)
  1. ZONEGRAN [Suspect]
     Indication: PARKINSON'S DISEASE
     Dosage: 25 MG, 1 IN 1 D, ORAL
     Route: 048
     Dates: start: 20050114, end: 20050701
  2. RISPERDAL [Suspect]
     Indication: ABNORMAL BEHAVIOUR
     Dosage: 2 MG, ORAL
     Route: 048
     Dates: start: 20060916, end: 20060918
  3. PARLODEL [Concomitant]
  4. NEODOPASOL (MADOPAR) [Concomitant]
  5. DOPS (DROXIDOPA) [Concomitant]
  6. ARTANE [Concomitant]
  7. CABERGOLINE [Concomitant]
  8. SEDIEL (TANDOSPIRONE CITRATE) [Concomitant]
  9. EVIPROSTAT (EVIPROSTAT) [Concomitant]
  10. MASHI-NIN-GAN [Concomitant]
  11. FRANDOL TAPE-S (ISOSORBIDE DINITRATE) [Concomitant]
  12. S M POWDER (S.M. POWDER) [Concomitant]

REACTIONS (10)
  - ABNORMAL BEHAVIOUR [None]
  - AGGRESSION [None]
  - APHAGIA [None]
  - CONDITION AGGRAVATED [None]
  - DEPRESSED LEVEL OF CONSCIOUSNESS [None]
  - DYSPHAGIA [None]
  - HALLUCINATION [None]
  - PNEUMONIA ASPIRATION [None]
  - SEDATION [None]
  - WHEEZING [None]
